FAERS Safety Report 23547737 (Version 2)
Quarter: 2024Q1

REPORT INFORMATION
  Report Type: Spontaneous
  Country: BR (occurrence: BR)
  Receive Date: 20240221
  Receipt Date: 20240226
  Transmission Date: 20240410
  Serious: Yes (Other)
  Sender: FDA-Public Use
  Company Number: BR-BAXTER-2024BAX013153

PATIENT
  Sex: Female

DRUGS (4)
  1. IRON [Suspect]
     Active Substance: IRON
     Indication: Anaemia
     Dosage: UNK
     Route: 065
     Dates: start: 202401
  2. IRON [Suspect]
     Active Substance: IRON
     Dosage: 200 MG DILUTED IN 250 ML OF 0.9% SALINE SOLUTION IN 1 HOUR ONCE A WEEK FOR 4 WEEKS
     Route: 042
     Dates: start: 20240208, end: 20240208
  3. SODIUM CHLORIDE [Suspect]
     Active Substance: SODIUM CHLORIDE
     Indication: Medication dilution
     Dosage: 250 ML OF 0.9% SALINE SOLUTION USED TO DILUTE 200 MG SUCROFER IN 1 HOUR ONCE A WEEK FOR 4 WEEKS
     Route: 042
     Dates: start: 20240208, end: 20240208
  4. ALLEGRA [Suspect]
     Active Substance: FEXOFENADINE HYDROCHLORIDE
     Indication: Antiallergic therapy
     Dosage: UNK
     Route: 048
     Dates: start: 20240208, end: 20240208

REACTIONS (2)
  - Skin reaction [Recovered/Resolved]
  - Hyperaemia [Recovered/Resolved]
